FAERS Safety Report 11791190 (Version 1)
Quarter: 2015Q4

REPORT INFORMATION
  Report Type: Report from Study
  Country: JP (occurrence: JP)
  Receive Date: 20151201
  Receipt Date: 20151201
  Transmission Date: 20160305
  Serious: Yes (Hospitalization)
  Sender: FDA-Public Use
  Company Number: JP-EISAI MEDICAL RESEARCH-EC-2015-012416

PATIENT
  Sex: Female

DRUGS (2)
  1. LENVIMA [Suspect]
     Active Substance: LENVATINIB
     Indication: ANAPLASTIC THYROID CANCER
     Route: 048
     Dates: start: 20151103, end: 20151120
  2. NOAC (ANTICOAGULANTS) [Suspect]
     Active Substance: UNSPECIFIED INGREDIENT
     Indication: CEREBROVASCULAR ACCIDENT PROPHYLAXIS
     Dosage: UNKNOWN
     Route: 048

REACTIONS (2)
  - Rectal haemorrhage [Unknown]
  - Epistaxis [None]

NARRATIVE: CASE EVENT DATE: 20151120
